FAERS Safety Report 25888901 (Version 3)
Quarter: 2025Q4

REPORT INFORMATION
  Report Type: Spontaneous
  Country: US (occurrence: US)
  Receive Date: 20251007
  Receipt Date: 20251105
  Transmission Date: 20260117
  Serious: No
  Sender: BRISTOL-MYERS SQUIBB COMPANY
  Company Number: US-BRISTOL-MYERS SQUIBB COMPANY-2025-136371

PATIENT
  Age: 66 Year
  Sex: Female
  Weight: 85.73 kg

DRUGS (2)
  1. ORENCIA [Suspect]
     Active Substance: ABATACEPT
     Indication: Rheumatoid arthritis
     Dosage: CODE UNIT: 125 MG/ML
     Route: 058
     Dates: start: 20250916
  2. ORENCIA [Suspect]
     Active Substance: ABATACEPT
     Route: 058
     Dates: start: 202509

REACTIONS (4)
  - Device difficult to use [Unknown]
  - Arthralgia [Unknown]
  - Device delivery system issue [Unknown]
  - Joint swelling [Unknown]
